FAERS Safety Report 7834292-3 (Version None)
Quarter: 2011Q4

REPORT INFORMATION
  Report Type: 
  Country: None (occurrence: None)
  Receive Date: 20111024
  Receipt Date: 20111013
  Transmission Date: 20120403
  Serious: Yes (Other)
  Sender: FDA-Public Use
  Company Number: JP-PFIZER INC-2011255640

PATIENT
  Age: 67 Year
  Sex: Male
  Weight: 67 kg

DRUGS (12)
  1. FLUOROURACIL [Concomitant]
     Dosage: 680 MG/BODY (407.2 MG/M2), UNK
     Route: 040
     Dates: start: 20110310, end: 20110310
  2. FLUOROURACIL [Concomitant]
     Dosage: 500 MG/BODY (299.4 MG/M2), UNK
     Route: 040
     Dates: start: 20110421, end: 20110714
  3. AVASTIN [Concomitant]
     Indication: COLORECTAL CANCER
     Dosage: 335 MG/BODY, UNK
     Route: 041
     Dates: start: 20110106, end: 20110217
  4. LEVOLEUCOVORIN CALCIUM [Concomitant]
     Indication: COLORECTAL CANCER
     Dosage: 340 MG/BODY (203.6 MG/M2), UNK
     Route: 041
     Dates: start: 20110106, end: 20110217
  5. AVASTIN [Concomitant]
     Dosage: 300 MG/BODY, UNK
     Route: 041
     Dates: start: 20110421, end: 20110714
  6. CAMPTOSAR [Suspect]
     Indication: COLORECTAL CANCER
     Dosage: 255 MG/BODY (152.7 MG/M2), UNK
     Route: 041
     Dates: start: 20110106, end: 20110310
  7. FLUOROURACIL [Concomitant]
     Indication: COLORECTAL CANCER
     Dosage: 4080 MG/BODY/D1-2 (2443.1 MG/M2/D1-2), UNK
     Route: 041
     Dates: start: 20110106, end: 20110217
  8. FLUOROURACIL [Concomitant]
     Dosage: 4092 MG/BODY/D1-2 (2450.3 MG/M2/D1-2), UNK
     Route: 041
     Dates: start: 20110310, end: 20110310
  9. CAMPTOSAR [Suspect]
     Dosage: 200 MG/BODY (119.8 MG/M2), UNK
     Route: 041
     Dates: start: 20110421, end: 20110714
  10. LEVOLEUCOVORIN CALCIUM [Concomitant]
     Dosage: 341 MG/BODY (204.2 MG/M2), UNK
     Route: 041
     Dates: start: 20110310, end: 20110310
  11. LEVOLEUCOVORIN CALCIUM [Concomitant]
     Dosage: 300 MG/BODY (179.6 MG/M2), UNK
     Route: 041
     Dates: start: 20110421, end: 20110714
  12. FLUOROURACIL [Concomitant]
     Dosage: 3250 MG/BODY/D1-2 (1946.1 MG/M2/D1-2), UNK
     Route: 041
     Dates: start: 20110421, end: 20110714

REACTIONS (2)
  - METABOLIC ACIDOSIS [None]
  - DYSPNOEA [None]
